FAERS Safety Report 7467302-6 (Version None)
Quarter: 2011Q2

REPORT INFORMATION
  Report Type: 
  Country: None (occurrence: None)
  Receive Date: 20110509
  Receipt Date: 20101122
  Transmission Date: 20111010
  Serious: Yes (Hospitalization)
  Sender: FDA-Public Use
  Company Number: US-ALEXION-A201001318

PATIENT
  Sex: Female

DRUGS (10)
  1. SOLIRIS [Suspect]
     Indication: PAROXYSMAL NOCTURNAL HAEMOGLOBINURIA
     Dosage: UNK
     Route: 042
     Dates: start: 20080601
  2. SOLIRIS [Suspect]
     Dosage: 1200 MG, Q2W
     Route: 042
     Dates: start: 20100804
  3. ALPRAZOLAM [Concomitant]
     Indication: ANXIETY
     Dosage: 1 MG, UNK
     Route: 048
  4. PRILOSEC [Concomitant]
     Indication: GASTRITIS EROSIVE
     Dosage: 20 MG, QD
     Route: 048
  5. AMLODIPINE BESYLATE [Concomitant]
     Dosage: 10 MG, UNK
     Route: 048
  6. SOLIRIS [Suspect]
     Dosage: UNK
  7. ARIXTRA [Concomitant]
     Dosage: 10 MG, UNK
  8. FLEXERIL [Concomitant]
     Dosage: 10 MG, UNK
     Route: 048
  9. PROMETHAZINE [Concomitant]
     Dosage: 25 MG, UNK
     Route: 048
  10. HYDROCODONE BITARTRATE AND ACETAMINOPHEN [Concomitant]
     Dosage: 7.5 MG/325 MG
     Route: 048

REACTIONS (4)
  - HAEMOGLOBIN DECREASED [None]
  - GASTROOESOPHAGEAL REFLUX DISEASE [None]
  - NEPHROLITHIASIS [None]
  - BLOOD IRON INCREASED [None]
